FAERS Safety Report 9505577 (Version 1)
Quarter: 2013Q1

REPORT INFORMATION
  Report Type: Spontaneous
  Country: US (occurrence: None)
  Receive Date: 20130220
  Receipt Date: 20130220
  Transmission Date: 20140127
  Serious: No
  Sender: FDA-Public Use
  Company Number: 1000041288

PATIENT
  Age: 56 Year
  Sex: Female

DRUGS (2)
  1. VIIBRYD (VILAZODONE HYDROCHLORIDE) [Suspect]
     Indication: DEPRESSION
     Route: 048
     Dates: start: 201210, end: 2012
  2. VIIBRYD (VILAZODONE HYDROCHLORIDE) [Suspect]
     Indication: PANIC DISORDER
     Route: 048
     Dates: start: 201210, end: 2012

REACTIONS (4)
  - Restless legs syndrome [None]
  - Energy increased [None]
  - Diarrhoea [None]
  - Chest discomfort [None]
